FAERS Safety Report 5962319-2 (Version None)
Quarter: 2008Q4

REPORT INFORMATION
  Report Type: 
  Country: None (occurrence: None)
  Receive Date: 20081119
  Receipt Date: 20080808
  Transmission Date: 20090506
  Serious: No
  Sender: FDA-Public Use
  Company Number: WAES 0808USA01669

PATIENT
  Age: 90 Year
  Sex: Female

DRUGS (5)
  1. JANUVIA [Suspect]
     Dosage: 100 MG/DAILY/PO; 100 MG/DAILY/PO; 100 MG/DAILY/PO; DAILY/PO
     Route: 048
     Dates: start: 20071101, end: 20071101
  2. JANUVIA [Suspect]
     Dosage: 100 MG/DAILY/PO; 100 MG/DAILY/PO; 100 MG/DAILY/PO; DAILY/PO
     Route: 048
     Dates: start: 20080201, end: 20080101
  3. JANUVIA [Suspect]
     Dosage: 100 MG/DAILY/PO; 100 MG/DAILY/PO; 100 MG/DAILY/PO; DAILY/PO
     Route: 048
     Dates: start: 20080601, end: 20080601
  4. JANUVIA [Suspect]
     Dosage: 100 MG/DAILY/PO; 100 MG/DAILY/PO; 100 MG/DAILY/PO; DAILY/PO
     Route: 048
     Dates: start: 20080802, end: 20080803
  5. GLYBURIDE [Concomitant]

REACTIONS (6)
  - DRUG INEFFECTIVE [None]
  - GAIT DISTURBANCE [None]
  - JOINT DISLOCATION [None]
  - MUSCLE DISORDER [None]
  - MUSCLE STRAIN [None]
  - WRONG TECHNIQUE IN DRUG USAGE PROCESS [None]
